FAERS Safety Report 4748703-3 (Version None)
Quarter: 2005Q3

REPORT INFORMATION
  Report Type: 
  Country: None (occurrence: None)
  Receive Date: 20050816
  Receipt Date: 20050801
  Transmission Date: 20060218
  Serious: Yes (Other)
  Sender: FDA-Public Use
  Company Number: THYM-10681

PATIENT
  Age: 41 Year
  Sex: Male

DRUGS (5)
  1. THYMOGLOBULIN [Suspect]
     Indication: RENAL TRANSPLANT
     Dosage: 1.5 MG/KG QD IV
     Route: 042
  2. HIGH DOSE STEROIDS [Concomitant]
  3. DIPHENHYDRAMINE HCL [Concomitant]
  4. ACETAMINOPHEN [Concomitant]
  5. MYCOPHENOLATE MOFETIL [Concomitant]

REACTIONS (2)
  - RENAL FAILURE ACUTE [None]
  - SERUM SICKNESS [None]
